FAERS Safety Report 6100314-3 (Version None)
Quarter: 2009Q1

REPORT INFORMATION
  Report Type: 
  Country: None (occurrence: None)
  Receive Date: 20090302
  Receipt Date: 20090302
  Transmission Date: 20090719
  Serious: Yes (Other)
  Sender: FDA-Public Use
  Company Number: None

PATIENT
  Age: 14 Year
  Sex: Female
  Weight: 55.3388 kg

DRUGS (1)
  1. YAZ [Suspect]
     Indication: MOOD ALTERED
     Dosage: 3 MG DAILY PO
     Route: 048
     Dates: start: 20090201, end: 20090228

REACTIONS (1)
  - PRODUCT QUALITY ISSUE [None]
